FAERS Safety Report 17376942 (Version 1)
Quarter: 2020Q1

REPORT INFORMATION
  Report Type: Spontaneous
  Country: US (occurrence: US)
  Receive Date: 20200205
  Receipt Date: 20200205
  Transmission Date: 20200409
  Serious: Yes (Death)
  Sender: FDA-Public Use
  Company Number: None

PATIENT
  Sex: Male
  Weight: 66.6 kg

DRUGS (4)
  1. SENNA LAXATIVE [Concomitant]
     Active Substance: SENNOSIDES
  2. REMERON [Concomitant]
     Active Substance: MIRTAZAPINE
  3. ERLOTINIB [Suspect]
     Active Substance: ERLOTINIB
     Route: 048
     Dates: start: 20200110, end: 20200205
  4. MIDODRINE [Concomitant]
     Active Substance: MIDODRINE

REACTIONS (1)
  - Death [None]
